FAERS Safety Report 9518679 (Version 1)
Quarter: 2013Q3

REPORT INFORMATION
  Report Type: Report from Study
  Country: BR (occurrence: BR)
  Receive Date: 20130912
  Receipt Date: 20130912
  Transmission Date: 20140515
  Serious: Yes (Death)
  Sender: FDA-Public Use
  Company Number: PHHY2013BR100381

PATIENT
  Age: 87 Year
  Sex: Female

DRUGS (1)
  1. EXELON PATCH [Suspect]
     Dosage: 9.5 MG, UNK (PATCH 10 CM2)
     Route: 062

REACTIONS (1)
  - Dementia Alzheimer^s type [Fatal]
